APPROVED DRUG PRODUCT: CHILDREN'S CETIRIZINE HYDROCHLORIDE HIVES RELIEF
Active Ingredient: CETIRIZINE HYDROCHLORIDE
Strength: 10MG
Dosage Form/Route: TABLET, CHEWABLE;ORAL
Application: A091116 | Product #004
Applicant: JUBILANT GENERICS LTD
Approved: Feb 19, 2015 | RLD: No | RS: No | Type: OTC